FAERS Safety Report 9154399 (Version 1)
Quarter: 2013Q1

REPORT INFORMATION
  Report Type: Spontaneous
  Country: US (occurrence: US)
  Receive Date: 20130311
  Receipt Date: 20130311
  Transmission Date: 20140127
  Serious: No
  Sender: FDA-Public Use
  Company Number: US-B.I. PHARMACEUTICALS,INC./RIDGEFIELD-2013-BI-06038BP

PATIENT
  Age: 53 None
  Sex: Female
  Weight: 50 kg

DRUGS (5)
  1. SPIRIVA [Suspect]
     Indication: CHRONIC OBSTRUCTIVE PULMONARY DISEASE
     Dosage: 36 MCG
     Route: 055
     Dates: start: 20130222, end: 20130301
  2. SPIRIVA [Suspect]
     Dosage: 18 MCG
     Route: 055
     Dates: start: 20130301
  3. PREDNISONE [Concomitant]
     Dosage: 5 MG
     Route: 048
  4. CELEBREX [Concomitant]
     Route: 048
  5. ALBUTEROL [Concomitant]
     Route: 055

REACTIONS (6)
  - Throat irritation [Not Recovered/Not Resolved]
  - Glossitis [Not Recovered/Not Resolved]
  - Oral pain [Not Recovered/Not Resolved]
  - Dry mouth [Not Recovered/Not Resolved]
  - Drug prescribing error [Recovered/Resolved]
  - Abnormal loss of weight [Not Recovered/Not Resolved]
